FAERS Safety Report 5139739-1 (Version None)
Quarter: 2006Q4

REPORT INFORMATION
  Report Type: 
  Country: None (occurrence: None)
  Receive Date: 20061024
  Receipt Date: 20061016
  Transmission Date: 20070319
  Serious: Yes (Other)
  Sender: FDA-Public Use
  Company Number: 2006AP000366

PATIENT
  Sex: Female

DRUGS (5)
  1. TIMOLOL MALEATE [Suspect]
     Indication: DRUG USE FOR UNKNOWN INDICATION
     Dosage: 2.5 MG; TAB; PO; BID
     Route: 048
  2. ALTACE [Concomitant]
  3. ASPIRIN [Concomitant]
  4. EZETROL /GFR/ (EZETIMIBE) [Concomitant]
  5. ZOCOR [Concomitant]

REACTIONS (3)
  - AMNESIA [None]
  - CONSTIPATION [None]
  - WEIGHT LOSS POOR [None]
